FAERS Safety Report 23061713 (Version 1)
Quarter: 2023Q4

REPORT INFORMATION
  Report Type: Spontaneous
  Country: US (occurrence: US)
  Receive Date: 20231013
  Receipt Date: 20231013
  Transmission Date: 20240109
  Serious: No
  Sender: FDA-Public Use
  Company Number: US-AMGEN-USASP2023180083

PATIENT

DRUGS (17)
  1. XGEVA [Suspect]
     Active Substance: DENOSUMAB
     Indication: Product used for unknown indication
     Dosage: UNK (120 MG/1.7 ML (70 MG/ML))
     Route: 065
  2. NEULASTA [Suspect]
     Active Substance: PEGFILGRASTIM
     Indication: Product used for unknown indication
     Dosage: UNK (6 MG/0.6 ML ) (3 NEULASTA PREFILLED SYRINGES FOR MANUAL USE)
     Route: 065
  3. NEULASTA [Suspect]
     Active Substance: PEGFILGRASTIM
     Dosage: UNK ( NEULASTA ONPRO KITS)
     Route: 065
  4. ARANESP [Suspect]
     Active Substance: DARBEPOETIN ALFA
     Indication: Product used for unknown indication
     Dosage: UNK (100MCG (2) )
     Route: 065
  5. ARANESP [Suspect]
     Active Substance: DARBEPOETIN ALFA
     Dosage: UNK (/150MCG (1))
     Route: 065
  6. ARANESP [Suspect]
     Active Substance: DARBEPOETIN ALFA
     Dosage: UNK (/200MCG (3))
     Route: 065
  7. ARANESP [Suspect]
     Active Substance: DARBEPOETIN ALFA
     Dosage: UNK (25MCG (2))
     Route: 065
  8. ARANESP [Suspect]
     Active Substance: DARBEPOETIN ALFA
     Dosage: UNK (/300MCG (2))
     Route: 065
  9. ARANESP [Suspect]
     Active Substance: DARBEPOETIN ALFA
     Dosage: UNK ( /40MCG (1))
     Route: 065
  10. ARANESP [Suspect]
     Active Substance: DARBEPOETIN ALFA
     Dosage: UNK (/500MCG (1) )
     Route: 065
  11. ARANESP [Suspect]
     Active Substance: DARBEPOETIN ALFA
     Dosage: UNK (/60MCG (5))
     Route: 065
  12. PROLIA [Suspect]
     Active Substance: DENOSUMAB
     Indication: Product used for unknown indication
     Dosage: UNK (STRENGTH: 60MG)
     Route: 065
  13. EPOGEN [Suspect]
     Active Substance: ERYTHROPOIETIN
     Indication: Product used for unknown indication
     Dosage: UNK (10,000 UNIT/VIAL 2)
     Route: 065
  14. EPOGEN [Suspect]
     Active Substance: ERYTHROPOIETIN
     Dosage: UNK (20,OOOUNITS/-4 )
     Route: 065
  15. EPOGEN [Suspect]
     Active Substance: ERYTHROPOIETIN
     Dosage: UNK (2,OOOUNITS/- 4)
     Route: 065
  16. EPOGEN [Suspect]
     Active Substance: ERYTHROPOIETIN
     Dosage: UNK (3,000- 2 )
     Route: 065
  17. EPOGEN [Suspect]
     Active Substance: ERYTHROPOIETIN
     Dosage: UNK (4,000 UNITS- 2)
     Route: 065

REACTIONS (2)
  - Product storage error [Unknown]
  - Intercepted product administration error [Unknown]

NARRATIVE: CASE EVENT DATE: 20231007
